FAERS Safety Report 6081534-3 (Version None)
Quarter: 2009Q1

REPORT INFORMATION
  Report Type: 
  Country: None (occurrence: None)
  Receive Date: 20090213
  Receipt Date: 20090202
  Transmission Date: 20090719
  Serious: Yes (Death, Hospitalization)
  Sender: FDA-Public Use
  Company Number: KV200800179

PATIENT
  Age: 72 Year
  Sex: Male

DRUGS (10)
  1. MORPHINE SULFATE [Suspect]
     Indication: PAIN
     Dosage: 60 MG, TID, ORAL
     Route: 048
     Dates: start: 20080612, end: 20080614
  2. TRILSATE (CHOLINE SALICYLATE, MAGNESIUM SALICYLATE) [Concomitant]
  3. BACTRIM DS [Concomitant]
  4. ACETAMINOPHEN [Concomitant]
  5. PROVENTIL [Concomitant]
  6. LACTULOSE [Concomitant]
  7. DILAUDID [Concomitant]
  8. COMPAZINE [Concomitant]
  9. ZOFRAN [Concomitant]
  10. MORPHINE SULFATE [Concomitant]

REACTIONS (7)
  - BLADDER CANCER [None]
  - DEPRESSED LEVEL OF CONSCIOUSNESS [None]
  - HYPERHIDROSIS [None]
  - HYPERSOMNIA [None]
  - MALIGNANT NEOPLASM PROGRESSION [None]
  - OVERDOSE [None]
  - PRODUCT QUALITY ISSUE [None]
